FAERS Safety Report 7744282-7 (Version None)
Quarter: 2011Q3

REPORT INFORMATION
  Report Type: 
  Country: None (occurrence: None)
  Receive Date: 20110912
  Receipt Date: 20110908
  Transmission Date: 20111222
  Serious: Yes (Hospitalization)
  Sender: FDA-Public Use
  Company Number: US-GILEAD-2011-0043397

PATIENT
  Sex: Male

DRUGS (2)
  1. LETAIRIS [Suspect]
     Indication: PULMONARY ARTERIAL HYPERTENSION
     Route: 048
     Dates: start: 20101209
  2. LETAIRIS [Suspect]
     Route: 048
     Dates: start: 20090629

REACTIONS (2)
  - HEPATIC MASS [None]
  - HEPATIC CIRRHOSIS [None]
